FAERS Safety Report 8591633-X (Version None)
Quarter: 2012Q3

REPORT INFORMATION
  Report Type: 
  Country: None (occurrence: None)
  Receive Date: 20120814
  Receipt Date: 20120801
  Transmission Date: 20120928
  Serious: Yes (Hospitalization)
  Sender: FDA-Public Use
  Company Number: FR-VERTEX PHARMACEUTICALS INC.-000000000000001258

PATIENT
  Sex: Female
  Weight: 65 kg

DRUGS (1)
  1. INCIVO [Suspect]
     Indication: PRODUCT USED FOR UNKNOWN INDICATION
     Dosage: DOSAGE FORM: TABLET
     Route: 048

REACTIONS (4)
  - PURPURA [None]
  - TOXIC SKIN ERUPTION [None]
  - RASH MACULO-PAPULAR [None]
  - MUCOSAL ULCERATION [None]
